FAERS Safety Report 4459063-X (Version None)
Quarter: 2004Q3

REPORT INFORMATION
  Report Type: 
  Country: None (occurrence: None)
  Receive Date: 20040927
  Receipt Date: 20040920
  Transmission Date: 20050211
  Serious: Yes (Life-Threatening)
  Sender: FDA-Public Use
  Company Number: VN-BRISTOL-MYERS SQUIBB COMPANY-12708491

PATIENT
  Age: 79 Year
  Sex: Female

DRUGS (2)
  1. TEQUIN [Suspect]
     Indication: PNEUMONIA
     Dosage: ON 2ND DAY OF TREATMENT, DOSE REDUCED TO 200 MG/DAY.
     Route: 048
  2. DIAMICRON [Concomitant]

REACTIONS (3)
  - HYPERHIDROSIS [None]
  - HYPOGLYCAEMIA [None]
  - SOMNOLENCE [None]
